FAERS Safety Report 19760718 (Version 4)
Quarter: 2022Q3

REPORT INFORMATION
  Report Type: Spontaneous
  Country: JP (occurrence: JP)
  Receive Date: 20210830
  Receipt Date: 20220714
  Transmission Date: 20221027
  Serious: Yes (Death, Other)
  Sender: FDA-Public Use
  Company Number: JP-GSKNCCC-CASE-01282495_AE-48373

PATIENT

DRUGS (27)
  1. ATOVAQUONE [Suspect]
     Active Substance: ATOVAQUONE
     Indication: Antifungal prophylaxis
     Dosage: 2 DF, QD
     Route: 048
     Dates: start: 20210626, end: 20210820
  2. CYCLOPHOSPHAMIDE [Suspect]
     Active Substance: CYCLOPHOSPHAMIDE
     Indication: Interstitial lung disease
     Dosage: 500 MG
     Route: 041
     Dates: start: 20210626, end: 20210723
  3. SULFAMETHOXAZOLE\TRIMETHOPRIM [Suspect]
     Active Substance: SULFAMETHOXAZOLE\TRIMETHOPRIM
     Indication: Antifungal prophylaxis
     Dosage: 1 G
     Route: 048
     Dates: start: 20210611, end: 20210625
  4. AMLODIPINE BESYLATE [Concomitant]
     Active Substance: AMLODIPINE BESYLATE
     Dosage: 10 MG, 1D
     Route: 048
     Dates: start: 20201009
  5. PIOGLITAZONE HYDROCHLORIDE TABLETS [Concomitant]
     Indication: Diabetes mellitus
     Dosage: 30 MG, 1D
     Route: 048
     Dates: start: 20201009, end: 20210813
  6. JANUVIA TABLET (SITAGLIPTIN PHOSPHATE HYDRATE) [Concomitant]
     Indication: Diabetes mellitus
     Dosage: 50 MG, 1D
     Route: 048
     Dates: start: 20201009, end: 20210823
  7. ENALAPRIL MALEATE [Concomitant]
     Active Substance: ENALAPRIL MALEATE
     Dosage: 10 MG, 1D
     Route: 048
     Dates: start: 20201009
  8. METGLUCO TABLETS [Concomitant]
     Indication: Diabetes mellitus
     Dosage: 500 MG, 1D
     Route: 048
     Dates: start: 20201009, end: 20210813
  9. METGLUCO TABLETS [Concomitant]
     Dosage: 500 MG, 1D
     Route: 048
     Dates: start: 20210731, end: 20210813
  10. PREDONINE [Concomitant]
     Active Substance: PREDNISOLONE
     Dosage: 5 MG
  11. INSULIN GLARGINE [Concomitant]
     Active Substance: INSULIN GLARGINE
  12. PANVITAN POWDER [Concomitant]
  13. FUNGIZONE [Concomitant]
     Active Substance: AMPHOTERICIN B
  14. ZOLPIDEM TARTRATE [Concomitant]
     Active Substance: ZOLPIDEM TARTRATE
  15. MAGNESIUM OXIDE [Concomitant]
     Active Substance: MAGNESIUM OXIDE
     Dosage: 330 MG
  16. LANSOPRAZOLE [Concomitant]
     Active Substance: LANSOPRAZOLE
     Dosage: 30 MG
  17. SENNOSIDES [Concomitant]
     Active Substance: SENNOSIDES
     Dosage: 12 MG
  18. CARBOCYSTEINE [Concomitant]
     Active Substance: CARBOCYSTEINE
     Dosage: 250 MG
  19. CALONAL [Concomitant]
     Active Substance: ACETAMINOPHEN
     Dosage: 200 MG
  20. BELSOMRA [Concomitant]
     Active Substance: SUVOREXANT
  21. LUNESTA TABLETS [Concomitant]
  22. MEROPENEM [Concomitant]
     Active Substance: MEROPENEM
     Indication: Pneumonia bacterial
     Dosage: UNK
     Dates: start: 20210611
  23. MINOCYCLINE HYDROCHLORIDE [Concomitant]
     Active Substance: MINOCYCLINE HYDROCHLORIDE
     Indication: Pneumonia bacterial
     Dosage: UNK
     Dates: start: 20210611
  24. ALIMTA [Concomitant]
     Active Substance: PEMETREXED DISODIUM
     Indication: Lung adenocarcinoma
     Dosage: UNK
     Dates: start: 20201227
  25. ALIMTA [Concomitant]
     Active Substance: PEMETREXED DISODIUM
     Dosage: UNK
     Dates: start: 202102
  26. KEYTRUDA [Concomitant]
     Active Substance: PEMBROLIZUMAB
     Indication: Lung adenocarcinoma
     Dosage: UNK
     Dates: start: 20201227
  27. KEYTRUDA [Concomitant]
     Active Substance: PEMBROLIZUMAB
     Dosage: UNK
     Dates: start: 202102

REACTIONS (6)
  - Drug-induced liver injury [Fatal]
  - Interstitial lung disease [Fatal]
  - Aspartate aminotransferase increased [Unknown]
  - Alanine aminotransferase increased [Unknown]
  - Jaundice [Unknown]
  - Hepatic enzyme increased [Unknown]

NARRATIVE: CASE EVENT DATE: 20210601
